FAERS Safety Report 20838347 (Version 3)
Quarter: 2022Q2

REPORT INFORMATION
  Report Type: Report from Study
  Country: CO (occurrence: CO)
  Receive Date: 20220517
  Receipt Date: 20220620
  Transmission Date: 20220721
  Serious: Yes (Hospitalization, Other)
  Sender: FDA-Public Use
  Company Number: CO-AMRYT PHARMACEUTICALS DAC-AEGR005176

PATIENT

DRUGS (15)
  1. MYALEPT [Suspect]
     Active Substance: METRELEPTIN
     Indication: Congenital generalised lipodystrophy
     Dosage: 1 MILLILITER, QD
     Route: 058
     Dates: start: 20210325, end: 20210525
  2. MYALEPT [Suspect]
     Active Substance: METRELEPTIN
     Dosage: 1 MILLILITER, QD
     Route: 058
     Dates: start: 20210527, end: 20210620
  3. MYALEPT [Suspect]
     Active Substance: METRELEPTIN
     Dosage: 1 MILLILTER, QD
     Route: 058
     Dates: start: 20210703, end: 20210807
  4. MYALEPT [Suspect]
     Active Substance: METRELEPTIN
     Dosage: 1 MILLILITER, QD
     Route: 058
     Dates: start: 20211002, end: 20220109
  5. MYALEPT [Suspect]
     Active Substance: METRELEPTIN
     Dosage: 1 MILLILITER, QD
     Route: 058
     Dates: start: 20220114, end: 20220413
  6. MYALEPT [Suspect]
     Active Substance: METRELEPTIN
     Dosage: 1 MILLILITER, QD
     Route: 058
     Dates: start: 20220114, end: 20220413
  7. MYALEPT [Suspect]
     Active Substance: METRELEPTIN
     Dosage: 1 MILLILITER, QD
     Route: 058
     Dates: start: 20220424, end: 20220430
  8. MYALEPT [Suspect]
     Active Substance: METRELEPTIN
     Dosage: 1 MILLILITER, QD
     Route: 058
     Dates: start: 20210325, end: 20220513
  9. MYALEPT [Suspect]
     Active Substance: METRELEPTIN
     Dosage: 1 MILLILITER, QD
     Route: 058
     Dates: start: 20220513, end: 20220608
  10. APIDRA [Concomitant]
     Active Substance: INSULIN GLULISINE
     Indication: Diabetes mellitus
     Dosage: 40 UNITS, QD
     Route: 058
     Dates: start: 20210421
  11. APIDRA [Concomitant]
     Active Substance: INSULIN GLULISINE
     Indication: Hypertriglyceridaemia
     Dosage: 40 UNITS, QD
     Route: 048
  12. LANTUS [Concomitant]
     Active Substance: INSULIN GLARGINE
     Indication: Diabetes mellitus
     Dosage: 10 UNITS/60 MILLILITER, QD
     Route: 058
     Dates: start: 20210421
  13. LANTUS [Concomitant]
     Active Substance: INSULIN GLARGINE
     Indication: Hypertriglyceridaemia
     Dosage: 60 UNITS, QD
     Route: 058
     Dates: start: 20210421
  14. FARXIGA [Concomitant]
     Active Substance: DAPAGLIFLOZIN PROPANEDIOL
     Indication: Hypertriglyceridaemia
     Dosage: 10 MILLIGRAM, QD
     Route: 048
     Dates: start: 20210520
  15. FARXIGA [Concomitant]
     Active Substance: DAPAGLIFLOZIN PROPANEDIOL
     Indication: Diabetes mellitus
     Dosage: 10 MILLIGRAM, QD
     Route: 048

REACTIONS (4)
  - Cataract [Not Recovered/Not Resolved]
  - Gastroenteritis [Recovered/Resolved]
  - Product supply issue [Unknown]
  - Therapy interrupted [Unknown]

NARRATIVE: CASE EVENT DATE: 20210325
